FAERS Safety Report 5812297-1 (Version None)
Quarter: 2008Q3

REPORT INFORMATION
  Report Type: 
  Country: None (occurrence: None)
  Receive Date: 20080716
  Receipt Date: 20080708
  Transmission Date: 20090109
  Serious: Yes (Hospitalization)
  Sender: FDA-Public Use
  Company Number: FR-PFIZER INC-2008056724

PATIENT
  Sex: Female

DRUGS (3)
  1. XANAX [Suspect]
     Dosage: TEXT:1 BLISTER
  2. VALPROIC ACID [Suspect]
     Dosage: TEXT:14 TABLETS
  3. MIRTAZAPINE [Suspect]

REACTIONS (1)
  - DEPRESSED LEVEL OF CONSCIOUSNESS [None]
